FAERS Safety Report 7304539-0 (Version None)
Quarter: 2011Q1

REPORT INFORMATION
  Report Type: 
  Country: None (occurrence: None)
  Receive Date: 20110221
  Receipt Date: 20100927
  Transmission Date: 20110831
  Serious: Yes (Other)
  Sender: FDA-Public Use
  Company Number: PHHY2010US67174

PATIENT
  Sex: Male

DRUGS (7)
  1. CARBOPLATIN [Concomitant]
  2. HYDROCODONE [Concomitant]
  3. ZOMETA [Suspect]
     Dosage: 4 MG Q. MONTH
     Route: 042
  4. XANAX [Concomitant]
     Indication: ANXIETY
     Dosage: O.J MG ONE P.O. Q.G HOURS P.R,N,
     Dates: start: 20100628
  5. NYSTATIN [Concomitant]
  6. TAXOL [Concomitant]
  7. TYLENOL [Concomitant]

REACTIONS (10)
  - NEOPLASM MALIGNANT [None]
  - FATIGUE [None]
  - LUNG NEOPLASM MALIGNANT [None]
  - MUSCULOSKELETAL DISCOMFORT [None]
  - MALAISE [None]
  - DYSPNOEA [None]
  - OEDEMA PERIPHERAL [None]
  - LUNG ADENOCARCINOMA [None]
  - DECREASED APPETITE [None]
  - WEIGHT DECREASED [None]
